FAERS Safety Report 15103770 (Version 2)
Quarter: 2018Q3

REPORT INFORMATION
  Report Type: Report from Study
  Country: RU (occurrence: RU)
  Receive Date: 20180703
  Receipt Date: 20180717
  Transmission Date: 20181010
  Serious: Yes (Hospitalization)
  Sender: FDA-Public Use
  Company Number: RU-ASTRAZENECA-2018SE66810

PATIENT
  Age: 69 Year
  Sex: Female
  Weight: 53 kg

DRUGS (7)
  1. AMLODIPINE [Concomitant]
     Active Substance: AMLODIPINE BESYLATE
  2. ATORIS [Concomitant]
     Active Substance: ATORVASTATIN CALCIUM
  3. LORISTA [Concomitant]
     Active Substance: LOSARTAN POTASSIUM
  4. BISOPROLOL [Concomitant]
     Active Substance: BISOPROLOL
  5. OMEPRAZOLE. [Concomitant]
     Active Substance: OMEPRAZOLE
  6. CARDIOMAGNYL [Concomitant]
     Active Substance: ASPIRIN\MAGNESIUM HYDROXIDE
  7. BRILINTA [Suspect]
     Active Substance: TICAGRELOR
     Indication: ANGINA UNSTABLE
     Route: 048
     Dates: start: 201710, end: 201806

REACTIONS (5)
  - Increased tendency to bruise [Recovered/Resolved]
  - Gingival bleeding [Recovered/Resolved]
  - Complication associated with device [Recovered/Resolved]
  - Oedema peripheral [Recovering/Resolving]
  - Headache [Recovered/Resolved]

NARRATIVE: CASE EVENT DATE: 201803
